FAERS Safety Report 4967387-2 (Version None)
Quarter: 2006Q2

REPORT INFORMATION
  Report Type: 
  Country: None (occurrence: None)
  Receive Date: 20060407
  Receipt Date: 20060407
  Transmission Date: 20061013
  Serious: Yes (Hospitalization)
  Sender: FDA-Public Use
  Company Number: None

PATIENT
  Sex: Male
  Weight: 72.1219 kg

DRUGS (1)
  1. IRESSA [Suspect]
     Indication: PANCREATIC CARCINOMA
     Dosage: OTHER
     Route: 050

REACTIONS (9)
  - ABSCESS [None]
  - CATHETER SITE ERYTHEMA [None]
  - CATHETER SITE HAEMATOMA [None]
  - CATHETER SITE PAIN [None]
  - CATHETER SITE RELATED REACTION [None]
  - ECCHYMOSIS [None]
  - INTERNATIONAL NORMALISED RATIO INCREASED [None]
  - SWELLING [None]
  - TENDERNESS [None]
